FAERS Safety Report 5045633-7 (Version None)
Quarter: 2006Q3

REPORT INFORMATION
  Report Type: 
  Country: None (occurrence: None)
  Receive Date: 20060707
  Receipt Date: 20030530
  Transmission Date: 20061208
  Serious: Yes (Hospitalization, Other)
  Sender: FDA-Public Use
  Company Number: JP-ABBOTT-03P-087-0221911-00

PATIENT
  Sex: Male

DRUGS (20)
  1. NORVIR [Suspect]
     Indication: HIV INFECTION
     Route: 048
     Dates: start: 20030320, end: 20040307
  2. NORVIR [Suspect]
     Route: 048
     Dates: start: 20050324
  3. DIDANOSINE [Suspect]
     Indication: HIV INFECTION
     Route: 048
     Dates: start: 20020717, end: 20020717
  4. DIDANOSINE [Suspect]
     Route: 048
     Dates: start: 20020718
  5. LAMIVUDINE [Suspect]
     Indication: HIV INFECTION
     Route: 048
     Dates: start: 20040401
  6. LAMIVUDINE [Suspect]
     Route: 048
     Dates: start: 20020401, end: 20020425
  7. ABACAVIR SULFATE [Suspect]
     Indication: HIV INFECTION
     Route: 048
     Dates: start: 20030320
  8. AMPRENAVIR [Suspect]
     Indication: HIV INFECTION
     Route: 048
     Dates: start: 20020718, end: 20040307
  9. EFAVIRENZ [Suspect]
     Indication: HIV INFECTION
     Route: 048
     Dates: start: 20020401, end: 20020718
  10. SANILVUDINE [Suspect]
     Indication: HIV INFECTION
     Route: 048
     Dates: start: 20040401
  11. ZIDOVUDINE [Concomitant]
     Indication: HIV INFECTION
     Route: 048
     Dates: start: 20020425, end: 20030320
  12. ZIDOVUDINE [Concomitant]
     Route: 048
     Dates: start: 20051128
  13. STAVUDINE [Concomitant]
     Indication: HIV INFECTION
     Route: 048
     Dates: start: 20020401, end: 20020425
  14. STAVUDINE [Concomitant]
     Route: 048
     Dates: start: 20030320, end: 20051127
  15. FLUCONAZOLE [Concomitant]
     Indication: CANDIDIASIS
     Route: 048
     Dates: start: 20020401
  16. ATAZANAVIR [Concomitant]
     Indication: HIV INFECTION
     Route: 048
     Dates: start: 20040308, end: 20050323
  17. ATAZANAVIR [Concomitant]
     Route: 048
     Dates: start: 20050401
  18. URSODEOXYCHOLIC ACID [Concomitant]
     Indication: LIVER DISORDER
     Route: 048
     Dates: start: 20020904, end: 20040909
  19. MOSAPRIDE CITRATE [Concomitant]
     Indication: NAUSEA
     Route: 048
     Dates: start: 20030401, end: 20040408
  20. CAMOSTAT MESILATE [Concomitant]
     Indication: PANCREATITIS
     Route: 048
     Dates: start: 20030502

REACTIONS (5)
  - BLOOD AMYLASE INCREASED [None]
  - GAMMA-GLUTAMYLTRANSFERASE INCREASED [None]
  - HEPATIC NEOPLASM MALIGNANT [None]
  - HEPATITIS B [None]
  - HYPERLIPIDAEMIA [None]
